FAERS Safety Report 6251594-5 (Version None)
Quarter: 2009Q2

REPORT INFORMATION
  Report Type: 
  Country: None (occurrence: None)
  Receive Date: 20090630
  Receipt Date: 20090622
  Transmission Date: 20091009
  Serious: Yes (Hospitalization)
  Sender: FDA-Public Use
  Company Number: US-ABBOTT-09P-163-0579382-00

PATIENT
  Weight: 63.56 kg

DRUGS (6)
  1. DEPAKOTE [Suspect]
     Indication: DRUG USE FOR UNKNOWN INDICATION
     Route: 048
     Dates: start: 19700101, end: 20081001
  2. DEPAKOTE [Suspect]
     Route: 048
     Dates: start: 20080901, end: 20090601
  3. DEPAKOTE [Suspect]
     Route: 048
     Dates: start: 20090601
  4. COUMADIN [Concomitant]
     Indication: DRUG USE FOR UNKNOWN INDICATION
  5. VERAPAMIL [Concomitant]
     Indication: HYPERTENSION
  6. LEVOTHYROXINE SODIUM [Concomitant]
     Indication: HYPOTHYROIDISM

REACTIONS (3)
  - HOSPITALISATION [None]
  - MANIA [None]
  - TREMOR [None]
